FAERS Safety Report 4851285-9 (Version None)
Quarter: 2005Q4

REPORT INFORMATION
  Report Type: 
  Country: None (occurrence: None)
  Receive Date: 20051208
  Receipt Date: 20051118
  Transmission Date: 20060501
  Serious: Yes (Other)
  Sender: FDA-Public Use
  Company Number: USA0510111195

PATIENT
  Sex: Female

DRUGS (10)
  1. GEMCITABINE (GEMCITABINE HYDROCHLORIDE)VIAL [Suspect]
     Indication: OVARIAN CANCER
     Dosage: 1200 MG, INTRAVENOUS
     Route: 042
     Dates: start: 20050524
  2. FUROSEMIDE [Concomitant]
  3. SPIRONOLACTONE [Concomitant]
  4. POTASSIUM (POTASSIUM) [Concomitant]
  5. PREVACID [Concomitant]
  6. LEVOTHYROXINE SODIUM [Concomitant]
  7. DIPHENHYDRAMINE HCL [Concomitant]
  8. PAXIL [Concomitant]
  9. LORAZEPAM [Concomitant]
  10. LISINOPRIL [Concomitant]

REACTIONS (4)
  - NEPHROTIC SYNDROME [None]
  - RENAL FAILURE [None]
  - STOMATITIS [None]
  - TUMOUR MARKER INCREASED [None]
